FAERS Safety Report 10020839 (Version 2)
Quarter: 2013Q4

REPORT INFORMATION
  Report Type: Spontaneous
  Country: CN (occurrence: None)
  Receive Date: 20131204
  Receipt Date: 20131205
  Transmission Date: 20140711
  Serious: Yes (Hospitalization, Other)
  Sender: FDA-Public Use
  Company Number: SYM-2013-13356

PATIENT
  Age: 72 Year
  Sex: Male

DRUGS (3)
  1. FLUOROURACIL [Suspect]
     Indication: SMALL INTESTINE CARCINOMA
     Dates: start: 20110328, end: 20110329
  2. ELOXATIN [Suspect]
     Indication: SMALL INTESTINE CARCINOMA
     Dosage: EVERY CYCLE
  3. CALCIUM FOLINATE [Suspect]
     Indication: SMALL INTESTINE CARCINOMA
     Dates: start: 20110328, end: 20110329

REACTIONS (3)
  - Bone marrow failure [None]
  - Hepatitis fulminant [None]
  - Hepatitis B [None]
